FAERS Safety Report 18373034 (Version 1)
Quarter: 2020Q4

REPORT INFORMATION
  Report Type: Spontaneous
  Country: CH (occurrence: CH)
  Receive Date: 20201012
  Receipt Date: 20201012
  Transmission Date: 20210114
  Serious: Yes (Life-Threatening, Hospitalization, Other)
  Sender: FDA-Public Use
  Company Number: CH-PFIZER INC-2020388454

PATIENT
  Age: 88 Year
  Sex: Female

DRUGS (10)
  1. CEFUROXIM FRESENIUS [Suspect]
     Active Substance: CEFUROXIME
     Dosage: TEST DOSE A FEW ML IMMEDIATELY BEFORE THE START OF THE REACTION
  2. METAMIZOLE [Concomitant]
     Active Substance: METAMIZOLE
     Dosage: 500 MG, 2X/DAY
     Route: 048
  3. DEXMEDETOMIDINUM [Suspect]
     Active Substance: DEXMEDETOMIDINE
     Dosage: 4 UG, 30 MIN BEFORE REACTION
     Route: 050
  4. CLINDAMYCIN HYDROCHLORIDE. [Concomitant]
     Active Substance: CLINDAMYCIN HYDROCHLORIDE
     Dosage: 300 MG, 4X/DAY
  5. CLEXANE [Concomitant]
     Active Substance: ENOXAPARIN SODIUM
     Dosage: 40 MG, DAILY
     Route: 058
  6. RAPIFEN [ALFENTANIL HYDROCHLORIDE] [Suspect]
     Active Substance: ALFENTANIL HYDROCHLORIDE
     Dosage: 0.25 MG, ABOUT 20 MIN BEFORE REACTION
     Route: 050
  7. ROBINUL-NEOSTIGMINE [Suspect]
     Active Substance: GLYCOPYRROLATE\NEOSTIGMINE
     Dosage: ABOUT 15 MIN BEFORE THE REACTION
  8. DAFALGAN [Concomitant]
     Active Substance: ACETAMINOPHEN
     Dosage: 500 MG, 2X/DAY
     Route: 048
  9. KETALAR [Suspect]
     Active Substance: KETAMINE HYDROCHLORIDE
     Dosage: 35 MG, ABOUT 10 MIN BEFORE THE REACTION
     Route: 050
  10. LIDOCAINE [LIDOCAINE HYDROCHLORIDE] [Suspect]
     Active Substance: LIDOCAINE HYDROCHLORIDE
     Dosage: 30 MG, ABOUT 15 MIN BEFORE REACTION
     Route: 050

REACTIONS (4)
  - Anaphylactic reaction [Recovered/Resolved]
  - Cardiac arrest [Recovered/Resolved]
  - Bronchospasm [Recovered/Resolved]
  - Hypotonia [Recovered/Resolved]

NARRATIVE: CASE EVENT DATE: 20200919
